FAERS Safety Report 7426302-2 (Version None)
Quarter: 2011Q2

REPORT INFORMATION
  Report Type: 
  Country: None (occurrence: None)
  Receive Date: 20110420
  Receipt Date: 20110412
  Transmission Date: 20111010
  Serious: Yes (Death)
  Sender: FDA-Public Use
  Company Number: A0923428A

PATIENT
  Age: 59 Year
  Sex: Female

DRUGS (5)
  1. METOPROLOL [Concomitant]
  2. NEXIUM [Concomitant]
  3. XELODA [Concomitant]
  4. VIREAD [Concomitant]
  5. TYKERB [Suspect]
     Indication: NEOPLASM MALIGNANT
     Dosage: 1250MG PER DAY
     Route: 048
     Dates: start: 20100810

REACTIONS (1)
  - DEATH [None]
